FAERS Safety Report 4667478-X (Version None)
Quarter: 2005Q2

REPORT INFORMATION
  Report Type: 
  Country: None (occurrence: None)
  Receive Date: 20050418
  Receipt Date: 20050405
  Transmission Date: 20051028
  Serious: Yes (Death)
  Sender: FDA-Public Use
  Company Number: S00125-05

PATIENT
  Age: 86 Year
  Sex: Male
  Weight: 83.9154 kg

DRUGS (9)
  1. SANTYL [Suspect]
     Indication: WOUND DEBRIDEMENT
     Dosage: APPLIED EVERY 8 HOURS
     Dates: start: 20050211, end: 20050225
  2. QUETIAPINE FUMARATE [Concomitant]
  3. MINTAZAPINE [Concomitant]
  4. AMLODIPINE [Concomitant]
  5. ASPIRIN [Concomitant]
  6. TYLENOL (CAPLET) [Concomitant]
  7. KEFLEX [Concomitant]
  8. METFORMIN [Concomitant]
  9. LISINOPRIL [Concomitant]

REACTIONS (1)
  - DEATH [None]
